FAERS Safety Report 21093695 (Version 1)
Quarter: 2022Q3

REPORT INFORMATION
  Report Type: Spontaneous
  Country: CN (occurrence: CN)
  Receive Date: 20220718
  Receipt Date: 20220718
  Transmission Date: 20221027
  Serious: Yes (Life-Threatening, Hospitalization, Other)
  Sender: FDA-Public Use
  Company Number: CN-KVK-TECH, INC-20220700047

PATIENT
  Age: 34 Year
  Sex: Male

DRUGS (1)
  1. CHLORPHENIRAMINE MALEATE [Suspect]
     Active Substance: CHLORPHENIRAMINE MALEATE
     Indication: Suicide attempt
     Dosage: 4000 MILLIGRAM, SINGLE
     Route: 048

REACTIONS (4)
  - Rhabdomyolysis [Recovered/Resolved]
  - Acute kidney injury [Recovered/Resolved]
  - Seizure [Recovered/Resolved]
  - Overdose [Recovered/Resolved]
